FAERS Safety Report 21580067 (Version 1)
Quarter: 2022Q4

REPORT INFORMATION
  Report Type: Spontaneous
  Country: US (occurrence: None)
  Receive Date: 20221110
  Receipt Date: 20221110
  Transmission Date: 20230112
  Serious: No
  Sender: FDA-Public Use
  Company Number: 2022A346966

PATIENT
  Age: 666 Month
  Sex: Female
  Weight: 72.6 kg

DRUGS (2)
  1. FASENRA [Suspect]
     Active Substance: BENRALIZUMAB
     Indication: Asthma
     Dosage: 30MG/ML EVERY EIGHT WEEKS
     Route: 058
     Dates: start: 2016
  2. SYMBICORT [Suspect]
     Active Substance: BUDESONIDE\FORMOTEROL FUMARATE DIHYDRATE
     Indication: Asthma
     Dosage: 200 DOSE AND FREQUENCY UNKNOWN UNKNOWN
     Route: 055

REACTIONS (12)
  - Fall [Recovered/Resolved]
  - Loss of consciousness [Recovered/Resolved]
  - Sputum discoloured [Unknown]
  - Laboratory test abnormal [Unknown]
  - Urinary incontinence [Unknown]
  - Asthma [Unknown]
  - General physical condition abnormal [Unknown]
  - Illness [Unknown]
  - Dyspnoea [Unknown]
  - Product dose omission issue [Not Recovered/Not Resolved]
  - Drug ineffective [Unknown]
  - Wrong technique in device usage process [Unknown]

NARRATIVE: CASE EVENT DATE: 20211201
